FAERS Safety Report 13871554 (Version 4)
Quarter: 2018Q2

REPORT INFORMATION
  Report Type: Report from Study
  Country: US (occurrence: US)
  Receive Date: 20170816
  Receipt Date: 20180412
  Transmission Date: 20180711
  Serious: Yes (Hospitalization, Other)
  Sender: FDA-Public Use
  Company Number: US-CORCEPT THERAPEUTICS INC.-US-2017CRT000630

PATIENT

DRUGS (3)
  1. KORLYM [Suspect]
     Active Substance: MIFEPRISTONE
     Dosage: 450 MG, QD
     Route: 048
     Dates: start: 201706, end: 2017
  2. KORLYM [Suspect]
     Active Substance: MIFEPRISTONE
     Dosage: 300 MG UNK, ALTERNATING WITH 600 MG EVERY OTHER DAY
     Route: 048
     Dates: start: 2017
  3. KORLYM [Suspect]
     Active Substance: MIFEPRISTONE
     Indication: CUSHING^S SYNDROME
     Dosage: 600 MG, QD
     Route: 048
     Dates: start: 201509, end: 201706

REACTIONS (10)
  - Product use issue [Not Recovered/Not Resolved]
  - Atrioventricular dissociation [Unknown]
  - Pharyngitis streptococcal [Unknown]
  - Somnolence [Unknown]
  - Heart rate decreased [Unknown]
  - Cardiac assistance device user [Recovered/Resolved]
  - Hypokalaemia [Unknown]
  - Neoplasm progression [Unknown]
  - Gastroenteritis [Unknown]
  - Fatigue [Unknown]

NARRATIVE: CASE EVENT DATE: 201509
